FAERS Safety Report 5590594-5 (Version None)
Quarter: 2008Q1

REPORT INFORMATION
  Report Type: 
  Country: None (occurrence: None)
  Receive Date: 20080110
  Receipt Date: 20080107
  Transmission Date: 20080703
  Serious: Yes (Hospitalization)
  Sender: FDA-Public Use
  Company Number: FABR-12261

PATIENT
  Age: 26 Year
  Sex: Male

DRUGS (4)
  1. FABRAZYME [Suspect]
     Indication: FABRY'S DISEASE
     Dosage: 1 MG/KG, Q2W, INTRAVENOUS; 1MG/KG, Q2W, INTRAVENOUS
     Route: 042
     Dates: start: 20040313, end: 20040101
  2. FABRAZYME [Suspect]
     Indication: FABRY'S DISEASE
     Dosage: 1 MG/KG, Q2W, INTRAVENOUS; 1MG/KG, Q2W, INTRAVENOUS
     Route: 042
     Dates: start: 20050412
  3. FABRAZYME [Suspect]
  4. FABRAZYME [Suspect]

REACTIONS (3)
  - SPINAL DISORDER [None]
  - STAPHYLOCOCCAL OSTEOMYELITIS [None]
  - TREATMENT NONCOMPLIANCE [None]
